FAERS Safety Report 23790733 (Version 1)
Quarter: 2024Q2

REPORT INFORMATION
  Report Type: Spontaneous
  Country: GB (occurrence: GB)
  Receive Date: 20240427
  Receipt Date: 20240427
  Transmission Date: 20240716
  Serious: Yes (Other)
  Sender: FDA-Public Use
  Company Number: None

PATIENT
  Age: 82 Year
  Sex: Female
  Weight: 48 kg

DRUGS (24)
  1. AZITHROMYCIN [Suspect]
     Active Substance: AZITHROMYCIN
     Dosage: TIME INTERVAL: 0.33333333 WEEKS: ONE TO BE TAKEN EVERY MONDAY, WEDNESDAY + FRIDAY
     Route: 065
     Dates: start: 20240105
  2. BECLOMETHASONE\FORMOTEROL [Concomitant]
     Active Substance: BECLOMETHASONE\FORMOTEROL
     Route: 055
     Dates: start: 20231219
  3. SODIUM CHLORIDE [Concomitant]
     Active Substance: SODIUM CHLORIDE
     Dosage: USE 2 VIALS (5MLS) FOR DILUTION OF NEBULISTION AS DIRECTED, DURATION: 30 DAYS
     Dates: start: 20240304, end: 20240403
  4. LACTULOSE [Concomitant]
     Active Substance: LACTULOSE
     Dosage: TIME INTERVAL: AS NECESSARY
     Dates: start: 20240403
  5. MOMETASONE [Concomitant]
     Active Substance: MOMETASONE
     Dosage: IN EACH NOSTRIL. ONCE SYMP...
     Dates: start: 20231124
  6. COLOMYCIN [Concomitant]
     Dosage: USE AS DIRECTED, DURATION: 1 DAY
     Dates: start: 20240228, end: 20240229
  7. ACETAMINOPHEN [Concomitant]
     Active Substance: ACETAMINOPHEN
     Dosage: TIME INTERVAL: AS NECESSARY: TAKE 1 OR 2 TABLETS EVERY 4 TO 6 HOURS WHEN REQ...
     Dates: start: 20240404
  8. COLISTIMETHATE [Concomitant]
     Active Substance: COLISTIMETHATE SODIUM
     Dosage: FOR NEBULISATION TWICE DAILY AS DIRECTED, DURATION: 30 DAYS
     Dates: start: 20240304, end: 20240403
  9. CLOPIDOGREL [Concomitant]
     Active Substance: CLOPIDOGREL BISULFATE
     Dosage: EACH MORNING AFTER FOOD
     Dates: start: 20231220
  10. CHLORHEXIDINE GLUCONATE [Concomitant]
     Active Substance: CHLORHEXIDINE GLUCONATE
     Dosage: RINSE THE MOUTH WITH 10ML FOR ABOUT 1 MINUTE TW..., DURATION: 15 DAYS
     Dates: start: 20240110, end: 20240125
  11. SPIRIVA [Concomitant]
     Active Substance: TIOTROPIUM BROMIDE MONOHYDRATE
     Dosage: (5 MICROGR...
     Route: 055
     Dates: start: 20230504
  12. HYDROMOL EMOLLIENT [Concomitant]
     Dosage: APPLY TO SKIN FREQUENTLY AND LIBERALLY, AS OFTE...
     Dates: start: 20230719
  13. CIPROFLOXACIN [Concomitant]
     Active Substance: CIPROFLOXACIN
     Dosage: FOR TWO WEEKS, DURATION: 14 DAYS
     Dates: start: 20240304, end: 20240318
  14. CARBOCYSTEINE [Concomitant]
     Active Substance: CARBOCYSTEINE
     Dosage: TIME INTERVAL: 0.33333333 DAYS: REVIEW IN 8 WEEKS
     Dates: start: 20240227
  15. UNSPECIFIED INGREDIENT [Concomitant]
     Active Substance: UNSPECIFIED INGREDIENT
     Dosage: INHALE 1 OR 2 DOSES WHEN REQUIRED, UP TO A MAXI...
     Dates: start: 20231219
  16. CHLORAMPHENICOL [Concomitant]
     Active Substance: CHLORAMPHENICOL
     Dosage: PUT ONE DROP INTO THE AFFECTED EYE(S) EVERY 2 H...
     Dates: start: 20240404
  17. GABAPENTIN [Concomitant]
     Active Substance: GABAPENTIN
     Dosage: TIME INTERVAL: 0.33333333 DAYS
     Dates: start: 20231220
  18. FERROUS SULFATE [Concomitant]
     Active Substance: FERROUS SULFATE
     Dosage: AFTER FOOD
     Dates: start: 20240402
  19. MONTELUKAST [Concomitant]
     Active Substance: MONTELUKAST SODIUM
     Dosage: EACH EVENING
     Dates: start: 20231220
  20. LANSOPRAZOLE [Concomitant]
     Active Substance: LANSOPRAZOLE
     Dosage: EVERY MORNING
     Dates: start: 20231220
  21. ATORVASTATIN [Concomitant]
     Active Substance: ATORVASTATIN
     Dosage: EACH NIGHT, DURATION: 110 DAYS
     Dates: start: 20231220, end: 20240408
  22. POLYETHYLENE GLYCOL 3350\POTASSIUM CHLORIDE\SODIUM BICARBONATE\SODIUM [Concomitant]
     Active Substance: POLYETHYLENE GLYCOL 3350\POTASSIUM CHLORIDE\SODIUM BICARBONATE\SODIUM CHLORIDE
     Dosage: TAKE ONE TO TWO SACHETS DISSOLVED IN WATER DAIL...
     Dates: start: 20231005
  23. ALBUTEROL [Concomitant]
     Active Substance: ALBUTEROL
     Dosage: 1 OR 2 PUFFS AS A SINGLE DOSE. CAN BE REPEATED ..., DURATION: 28 DAYS
     Dates: start: 20240304, end: 20240401
  24. AMITRIPTYLINE HYDROCHLORIDE [Concomitant]
     Active Substance: AMITRIPTYLINE HYDROCHLORIDE
     Dosage: EACH NIGHT, DURATION: 110 DAYS
     Dates: start: 20231220

REACTIONS (1)
  - Lip swelling [Recovering/Resolving]
